FAERS Safety Report 4611535-0 (Version None)
Quarter: 2005Q2

REPORT INFORMATION
  Report Type: 
  Country: None (occurrence: None)
  Receive Date: 20050311
  Receipt Date: 20041118
  Transmission Date: 20051028
  Serious: No
  Sender: FDA-Public Use
  Company Number: 2004-BP-10963BP

PATIENT
  Age: 48 Year
  Sex: Female

DRUGS (4)
  1. SPIRIVA [Suspect]
     Indication: DYSPNOEA
     Dosage: 18 MCG (18 MCG, QD), IH
     Route: 055
     Dates: start: 20040917
  2. ALBUTEROL [Concomitant]
  3. SINGULAIR (MOTELUKAST) [Concomitant]
  4. LODINE [Concomitant]

REACTIONS (2)
  - PRURITUS [None]
  - URTICARIA [None]
